FAERS Safety Report 8272500-8 (Version None)
Quarter: 2012Q2

REPORT INFORMATION
  Report Type: 
  Country: None (occurrence: None)
  Receive Date: 20120410
  Receipt Date: 20120409
  Transmission Date: 20120825
  Serious: No
  Sender: FDA-Public Use
  Company Number: US-PFIZER INC-2012089033

PATIENT
  Sex: Female
  Weight: 65.76 kg

DRUGS (4)
  1. CYMBALTA [Concomitant]
     Dosage: 60 MG, 1X/DAY
  2. EVISTA [Concomitant]
     Indication: BONE DISORDER
     Dosage: 60 MG, 1X/DAY
  3. CHANTIX [Suspect]
     Indication: SMOKING CESSATION THERAPY
     Dosage: 1 MG, 2X/DAY
     Route: 048
     Dates: start: 20110101, end: 20110101
  4. SYNTHROID [Concomitant]
     Dosage: 125 UG, 1X/DAY

REACTIONS (4)
  - NERVOUSNESS [None]
  - MALAISE [None]
  - FEELING JITTERY [None]
  - PALPITATIONS [None]
